FAERS Safety Report 23577371 (Version 1)
Quarter: 2024Q1

REPORT INFORMATION
  Report Type: Spontaneous
  Country: US (occurrence: None)
  Receive Date: 20240228
  Receipt Date: 20240228
  Transmission Date: 20240410
  Serious: Yes (Hospitalization)
  Sender: FDA-Public Use
  Company Number: US-FARMAPROD-202402-0436

PATIENT
  Sex: Female
  Weight: 49.032 kg

DRUGS (6)
  1. OXERVATE [Suspect]
     Active Substance: CENEGERMIN-BKBJ
     Indication: Neurotrophic keratopathy
     Route: 047
     Dates: start: 20240129
  2. TIMOLOL MALEATE [Concomitant]
     Active Substance: TIMOLOL MALEATE
     Dosage: DROPERETTE
  3. LATANOPROST [Concomitant]
     Active Substance: LATANOPROST
  4. GENTLE LAXATIVE [Concomitant]
     Dosage: RECTAL
  5. FUROSEMIDE [Concomitant]
     Active Substance: FUROSEMIDE
  6. COLACE [Concomitant]
     Active Substance: DOCUSATE SODIUM

REACTIONS (3)
  - Pericardial effusion [Unknown]
  - Pulmonary oedema [Unknown]
  - Urinary tract infection [Not Recovered/Not Resolved]
